FAERS Safety Report 7271810-0 (Version None)
Quarter: 2011Q1

REPORT INFORMATION
  Report Type: 
  Country: None (occurrence: None)
  Receive Date: 20110203
  Receipt Date: 20110126
  Transmission Date: 20110831
  Serious: Yes (Hospitalization, Other)
  Sender: FDA-Public Use
  Company Number: US-JNJFOC-20100604187

PATIENT
  Sex: Female

DRUGS (1)
  1. LEVAQUIN [Suspect]
     Indication: OROPHARYNGEAL PAIN
     Route: 048

REACTIONS (5)
  - BURSITIS [None]
  - TENDONITIS [None]
  - ROTATOR CUFF SYNDROME [None]
  - ILIOTIBIAL BAND SYNDROME [None]
  - TENDON DISORDER [None]
